FAERS Safety Report 7227829-9 (Version None)
Quarter: 2011Q1

REPORT INFORMATION
  Report Type: 
  Country: None (occurrence: None)
  Receive Date: 20110111
  Receipt Date: 20110111
  Transmission Date: 20110831
  Serious: Yes (Other)
  Sender: FDA-Public Use
  Company Number: None

PATIENT
  Sex: Male
  Weight: 66.2252 kg

DRUGS (1)
  1. IRINOTECAN HCL [Suspect]
     Dosage: 10MG IV
     Route: 042

REACTIONS (9)
  - TREMOR [None]
  - TACHYCARDIA [None]
  - BLOOD PRESSURE DECREASED [None]
  - BODY TEMPERATURE INCREASED [None]
  - CHILLS [None]
  - DIZZINESS [None]
  - DRUG HYPERSENSITIVITY [None]
  - SYNCOPE [None]
  - NAUSEA [None]
